FAERS Safety Report 20066561 (Version 4)
Quarter: 2022Q1

REPORT INFORMATION
  Report Type: Other
  Country: JP (occurrence: JP)
  Receive Date: 20211115
  Receipt Date: 20220314
  Transmission Date: 20220423
  Serious: Yes (Death, Hospitalization)
  Sender: FDA-Public Use
  Company Number: JP-CHUGAI-2021026033

PATIENT
  Age: 76 Year
  Sex: Male
  Weight: 41.6 kg

DRUGS (5)
  1. AVASTIN [Suspect]
     Active Substance: BEVACIZUMAB
     Indication: Colon cancer
     Dosage: AS REQUIRED
     Route: 041
     Dates: start: 20210114, end: 20210114
  2. XELODA [Suspect]
     Active Substance: CAPECITABINE
     Indication: Colon cancer
     Dosage: UNK
     Route: 048
     Dates: start: 20210114, end: 20210124
  3. OXALIPLATIN [Concomitant]
     Active Substance: OXALIPLATIN
     Indication: Colon cancer
     Route: 041
     Dates: start: 202101
  4. ALOXI [Concomitant]
     Active Substance: PALONOSETRON HYDROCHLORIDE
     Dosage: UNK, SINGLE
     Route: 065
     Dates: start: 20210114, end: 20210114
  5. DEXAMETHASONE SODIUM PHOSPHATE [Concomitant]
     Active Substance: DEXAMETHASONE SODIUM PHOSPHATE
     Dosage: UNK, SINGLE
     Route: 065
     Dates: start: 20210114, end: 20210114

REACTIONS (3)
  - Dermatitis [Recovered/Resolved]
  - Dermatomyositis [Recovered/Resolved]
  - Colon cancer [Fatal]

NARRATIVE: CASE EVENT DATE: 20210119
